FAERS Safety Report 19026445 (Version 2)
Quarter: 2021Q2

REPORT INFORMATION
  Report Type: Spontaneous
  Country: US (occurrence: US)
  Receive Date: 20210318
  Receipt Date: 20210520
  Transmission Date: 20210717
  Serious: No
  Sender: FDA-Public Use
  Company Number: US-PFIZER INC-2021017815

PATIENT
  Age: 40 Year
  Sex: Male

DRUGS (1)
  1. XELJANZ [Suspect]
     Active Substance: TOFACITINIB CITRATE
     Indication: COLITIS ULCERATIVE
     Dosage: 10 MG, 2X/DAY
     Route: 048
     Dates: start: 202012

REACTIONS (5)
  - Condition aggravated [Unknown]
  - Therapeutic product effect incomplete [Unknown]
  - Full blood count abnormal [Unknown]
  - Sleep disorder [Unknown]
  - Product dose omission issue [Unknown]
